FAERS Safety Report 6296765-7 (Version None)
Quarter: 2009Q3

REPORT INFORMATION
  Report Type: 
  Country: None (occurrence: None)
  Receive Date: 20090804
  Receipt Date: 20090729
  Transmission Date: 20100115
  Serious: Yes (Hospitalization)
  Sender: FDA-Public Use
  Company Number: CA-ASTRAZENECA-2009UW21572

PATIENT
  Sex: Female

DRUGS (6)
  1. CRESTOR [Suspect]
     Route: 048
     Dates: start: 20090101, end: 20090401
  2. CRESTOR [Suspect]
     Route: 048
     Dates: start: 20090501
  3. WARFARIN SODIUM [Concomitant]
  4. METOPROLOL TARTRATE [Concomitant]
  5. RAMIPRIL [Concomitant]
     Dates: start: 20020101
  6. METOCLOPRAMIDE [Concomitant]

REACTIONS (3)
  - ALOPECIA [None]
  - HERNIA [None]
  - ILEOSTOMY [None]
